FAERS Safety Report 4399780-3 (Version None)
Quarter: 2004Q3

REPORT INFORMATION
  Report Type: 
  Country: None (occurrence: None)
  Receive Date: 20040714
  Receipt Date: 20040701
  Transmission Date: 20050211
  Serious: No
  Sender: FDA-Public Use
  Company Number: 04P-087-0265660-00

PATIENT
  Age: 75 Year
  Sex: Male

DRUGS (5)
  1. TRICOR [Suspect]
     Indication: HYPERLIPIDAEMIA
     Dosage: ORAL
     Route: 048
     Dates: start: 20031030, end: 20040601
  2. ISOSOBIDE MONONITRATE [Concomitant]
  3. WARFARIN POTASSIUM [Concomitant]
  4. HERBESSER ^TANABE^ [Concomitant]
  5. ASPIRIN [Concomitant]

REACTIONS (2)
  - RENAL FAILURE [None]
  - RHABDOMYOLYSIS [None]
